FAERS Safety Report 11809254 (Version 3)
Quarter: 2016Q1

REPORT INFORMATION
  Report Type: Spontaneous
  Country: JP (occurrence: JP)
  Receive Date: 20151207
  Receipt Date: 20160225
  Transmission Date: 20160525
  Serious: Yes (Hospitalization, Other)
  Sender: FDA-Public Use
  Company Number: JP-ELI_LILLY_AND_COMPANY-JP201512000349

PATIENT
  Age: 55 Year
  Sex: Male

DRUGS (2)
  1. PACLITAXEL. [Concomitant]
     Active Substance: PACLITAXEL
     Indication: GASTRIC CANCER
     Dosage: 80 MG/M2, OTHER
     Route: 042
     Dates: start: 20151001, end: 20151105
  2. CYRAMZA [Suspect]
     Active Substance: RAMUCIRUMAB
     Indication: GASTRIC CANCER
     Dosage: 8 MG/KG, OTHER
     Route: 042
     Dates: start: 20151001, end: 20151029

REACTIONS (3)
  - Pneumothorax [Recovered/Resolved]
  - Volvulus [Recovered/Resolved]
  - Wound dehiscence [Not Recovered/Not Resolved]

NARRATIVE: CASE EVENT DATE: 20151112
